FAERS Safety Report 13242373 (Version 1)
Quarter: 2017Q1

REPORT INFORMATION
  Report Type: Spontaneous
  Country: US (occurrence: US)
  Receive Date: 20170216
  Receipt Date: 20170216
  Transmission Date: 20170428
  Serious: No
  Sender: FDA-Public Use
  Company Number: US-SHIRE-US201701645

PATIENT
  Age: 19 Year
  Sex: Female
  Weight: 82.54 kg

DRUGS (4)
  1. PENTASA [Suspect]
     Active Substance: MESALAMINE
     Indication: CROHN^S DISEASE
     Dosage: UNK, UNKNOWN
     Route: 048
     Dates: start: 201602, end: 201604
  2. HUMIRA [Concomitant]
     Active Substance: ADALIMUMAB
     Indication: CROHN^S DISEASE
     Dosage: 40 MG (1 IN 7 D), 1X/WEEK
     Route: 058
     Dates: start: 2012
  3. HUMIRA [Concomitant]
     Active Substance: ADALIMUMAB
     Dosage: 160 MG, ONE DOSE; LOADING DOSE
     Route: 058
     Dates: start: 20160208, end: 20160208
  4. HUMIRA [Concomitant]
     Active Substance: ADALIMUMAB
     Dosage: 40 MG, 1X/WEEK; 40MG/0.8ML, SOLUTIN FOR INJECTIO IN PRE-FILLED PEN
     Route: 058
     Dates: start: 2016

REACTIONS (2)
  - Product use issue [Recovered/Resolved]
  - Headache [Unknown]

NARRATIVE: CASE EVENT DATE: 201602
